FAERS Safety Report 23286964 (Version 1)
Quarter: 2023Q4

REPORT INFORMATION
  Report Type: Spontaneous
  Country: US (occurrence: US)
  Receive Date: 20231212
  Receipt Date: 20231212
  Transmission Date: 20240110
  Serious: No
  Sender: FDA-Public Use
  Company Number: US-BAXTER-2023BAX037840

PATIENT
  Sex: Female

DRUGS (1)
  1. SODIUM CHLORIDE [Suspect]
     Active Substance: SODIUM CHLORIDE
     Dosage: 3 INFUSIONS OF 1000 ML AND 3RD INFUSION GIVEN ON 07-DEC-2023
     Route: 065
     Dates: start: 20231117

REACTIONS (3)
  - Discomfort [Unknown]
  - Fatigue [Unknown]
  - Coordination abnormal [Unknown]

NARRATIVE: CASE EVENT DATE: 20231117
